FAERS Safety Report 18651002 (Version 1)
Quarter: 2020Q4

REPORT INFORMATION
  Report Type: Spontaneous
  Country: SE (occurrence: SE)
  Receive Date: 20201222
  Receipt Date: 20201222
  Transmission Date: 20210114
  Serious: Yes (Other)
  Sender: FDA-Public Use
  Company Number: SE-009507513-2012SWE008475

PATIENT
  Sex: Female

DRUGS (1)
  1. NUVARING [Suspect]
     Active Substance: ETHINYL ESTRADIOL\ETONOGESTREL
     Dosage: UNK
     Route: 063

REACTIONS (3)
  - Weight gain poor [Recovered/Resolved]
  - Mood altered [Recovered/Resolved]
  - Exposure via breast milk [Recovered/Resolved]
